FAERS Safety Report 15374885 (Version 2)
Quarter: 2018Q3

REPORT INFORMATION
  Report Type: Spontaneous
  Country: JP (occurrence: JP)
  Receive Date: 20180912
  Receipt Date: 20180925
  Transmission Date: 20181010
  Serious: Yes (Hospitalization)
  Sender: FDA-Public Use
  Company Number: JP-OTSUKA-2018_028085

PATIENT
  Age: 8 Decade
  Sex: Male

DRUGS (1)
  1. ABILIFY [Suspect]
     Active Substance: ARIPIPRAZOLE
     Indication: DRY MOUTH
     Dosage: 6 MG, DAILY DOSE
     Route: 048

REACTIONS (2)
  - Product use in unapproved indication [Unknown]
  - Fracture [Unknown]
